FAERS Safety Report 15343202 (Version 1)
Quarter: 2018Q3

REPORT INFORMATION
  Report Type: Spontaneous
  Country: US (occurrence: US)
  Receive Date: 20180903
  Receipt Date: 20180903
  Transmission Date: 20181010
  Serious: Yes (Hospitalization, Other)
  Sender: FDA-Public Use
  Company Number: US-BRISTOL-MYERS SQUIBB COMPANY-BMS-2018-078673

PATIENT
  Sex: Male

DRUGS (1)
  1. COUMADIN [Suspect]
     Active Substance: WARFARIN SODIUM
     Indication: DEEP VEIN THROMBOSIS
     Dosage: 5 MG, DAILY
     Route: 048
     Dates: start: 1987

REACTIONS (4)
  - Pulmonary embolism [Unknown]
  - Coagulopathy [Unknown]
  - Back pain [Unknown]
  - Gene mutation [Unknown]

NARRATIVE: CASE EVENT DATE: 1992
